FAERS Safety Report 20905858 (Version 1)
Quarter: 2022Q2

REPORT INFORMATION
  Report Type: Spontaneous
  Country: US (occurrence: US)
  Receive Date: 20220602
  Receipt Date: 20220602
  Transmission Date: 20220721
  Serious: No
  Sender: FDA-Public Use
  Company Number: US-PFIZER INC-202200782599

PATIENT
  Sex: Female

DRUGS (1)
  1. PAXLOVID [Suspect]
     Active Substance: NIRMATRELVIR\RITONAVIR
     Indication: COVID-19 treatment
     Dosage: 1 DF, 2X/DAY (INSTEAD OF 3 TABLETS IN THE MORNING AND 3 IN THE EVENING, SHE TOOK 1 AND 1)
     Dates: start: 202205, end: 202205

REACTIONS (1)
  - Incorrect dose administered [Unknown]
